FAERS Safety Report 5223869-X (Version None)
Quarter: 2007Q1

REPORT INFORMATION
  Report Type: 
  Country: None (occurrence: None)
  Receive Date: 20070130
  Receipt Date: 20070125
  Transmission Date: 20070707
  Serious: Yes (Other)
  Sender: FDA-Public Use
  Company Number: US-AVENTIS-200618300US

PATIENT
  Sex: Female

DRUGS (7)
  1. LOVENOX [Suspect]
     Dates: start: 20060923, end: 20061002
  2. COUMADIN [Suspect]
     Dosage: DOSE: 5MG STAGGERED WITH 2.5MG
     Dates: start: 20060923, end: 20061002
  3. COUMADIN [Suspect]
     Dosage: DOSE: UNK
  4. FUROSEMIDE [Concomitant]
     Dosage: DOSE: UNK
  5. LEVOXYL [Concomitant]
     Dosage: DOSE: UNK
  6. DILTIAZEM [Concomitant]
     Dosage: DOSE: UNK
  7. LISINOPRIL [Concomitant]
     Dosage: DOSE: UNK

REACTIONS (7)
  - ANGIOPATHY [None]
  - CONTUSION [None]
  - FATIGUE [None]
  - GINGIVAL BLEEDING [None]
  - INTERNATIONAL NORMALISED RATIO INCREASED [None]
  - MUSCULOSKELETAL PAIN [None]
  - PROTHROMBIN TIME PROLONGED [None]
